FAERS Safety Report 7401580-4 (Version None)
Quarter: 2011Q2

REPORT INFORMATION
  Report Type: 
  Country: None (occurrence: None)
  Receive Date: 20110408
  Receipt Date: 20110329
  Transmission Date: 20111010
  Serious: Yes (Other)
  Sender: FDA-Public Use
  Company Number: AR-BIOGENIDEC-2011BI012474

PATIENT
  Age: 55 Year
  Sex: Female

DRUGS (3)
  1. AKATINOL [Concomitant]
  2. AVONEX [Suspect]
     Indication: MULTIPLE SCLEROSIS
     Route: 030
     Dates: start: 19990101
  3. LEXAPRO [Concomitant]

REACTIONS (6)
  - HYSTERECTOMY [None]
  - HEADACHE [None]
  - OOPHORECTOMY [None]
  - DRUG INTERACTION [None]
  - BREAST CANCER [None]
  - BREAST MASS [None]
